FAERS Safety Report 5062899-8 (Version None)
Quarter: 2006Q3

REPORT INFORMATION
  Report Type: 
  Country: None (occurrence: None)
  Receive Date: 20060724
  Receipt Date: 20060711
  Transmission Date: 20061208
  Serious: Yes (Hospitalization)
  Sender: FDA-Public Use
  Company Number: 2006055652

PATIENT
  Age: 70 Year
  Sex: Male
  Weight: 82.2 kg

DRUGS (19)
  1. SUTENT [Suspect]
     Indication: RENAL CELL CARCINOMA STAGE UNSPECIFIED
     Dosage: 50 MG (50 MG, DAILY), ORAL
     Route: 048
     Dates: start: 20051208, end: 20060329
  2. VASOTEC [Concomitant]
  3. TAPAZOLE [Concomitant]
  4. UNIDET (TOLTERODINE) [Concomitant]
  5. IMIPRAMINE [Concomitant]
  6. XALATAN [Concomitant]
  7. MULTIVITAMIN [Concomitant]
  8. ZOMETA [Concomitant]
  9. ACETAMINOPHEN [Concomitant]
  10. POLYSPORIN OINTMENT (BACITRACIN ZINC, POLYMYXIN B SULFATE) [Concomitant]
  11. ALUMINUM HYDROXIDE AND MAGNESIUM TRISILICATE [Concomitant]
  12. ZANTAC [Concomitant]
  13. NYSTATIN [Concomitant]
  14. COLACE (DOCUSATE SODIUM) [Concomitant]
  15. LOSEC (OMEPRAZOLE) [Concomitant]
  16. MAGIC MOUTHWASH (ALUMINIUM HYDROXIDE, DIPHENHYDRAMINE HYDROCHLORIDE, L [Concomitant]
  17. PREPARATION H (LIVE YEAST CELL EXTRACT, SHARK-LIVER OIL) [Concomitant]
  18. SENOKOT [Concomitant]
  19. EUCERIN CREME (PARAFFIN, LIQUID, PETROLATUM, WOOL FAT) [Concomitant]

REACTIONS (6)
  - AORTIC DISSECTION [None]
  - ATELECTASIS [None]
  - CHOLELITHIASIS [None]
  - GYNAECOMASTIA [None]
  - HYPERTENSIVE CRISIS [None]
  - PANCREATIC ATROPHY [None]
